FAERS Safety Report 20139073 (Version 2)
Quarter: 2022Q1

REPORT INFORMATION
  Report Type: Spontaneous
  Country: US (occurrence: US)
  Receive Date: 20211202
  Receipt Date: 20220202
  Transmission Date: 20220423
  Serious: Yes (Other)
  Sender: FDA-Public Use
  Company Number: US-BIOVITRUM-2021US11368

PATIENT
  Sex: Male

DRUGS (2)
  1. SYNAGIS [Suspect]
     Active Substance: PALIVIZUMAB
     Indication: Cytogenetic abnormality
     Route: 030
     Dates: start: 20211020
  2. SYNAGIS [Suspect]
     Active Substance: PALIVIZUMAB
     Indication: Dysphagia

REACTIONS (1)
  - Seizure [Unknown]
